FAERS Safety Report 6661435-X (Version None)
Quarter: 2010Q1

REPORT INFORMATION
  Report Type: 
  Country: None (occurrence: None)
  Receive Date: 20100329
  Receipt Date: 20100323
  Transmission Date: 20100710
  Serious: Yes (Other)
  Sender: FDA-Public Use
  Company Number: 009229

PATIENT
  Age: 47 Year
  Sex: Male

DRUGS (2)
  1. KEPPRA [Suspect]
     Indication: CONVULSION
     Dates: start: 20090113, end: 20090216
  2. DILANTIN [Concomitant]

REACTIONS (3)
  - ANGER [None]
  - FEAR [None]
  - PANIC ATTACK [None]
